APPROVED DRUG PRODUCT: NALOXONE HYDROCHLORIDE (AUTOINJECTOR)
Active Ingredient: NALOXONE HYDROCHLORIDE
Strength: 10MG/0.4ML (10MG/0.4ML)
Dosage Form/Route: SOLUTION;INTRAMUSCULAR, SUBCUTANEOUS
Application: N215457 | Product #001
Applicant: KALEO INC
Approved: Feb 28, 2022 | RLD: Yes | RS: No | Type: DISCN

PATENTS:
Patent 10322239 | Expires: Feb 28, 2031
Patent 10143792 | Expires: May 24, 2031
Patent 9474869 | Expires: Feb 28, 2031
Patent 8939943 | Expires: Feb 28, 2031
Patent 9022022 | Expires: Feb 28, 2031
Patent 9814838 | Expires: Feb 28, 2031